FAERS Safety Report 7316967-8 (Version None)
Quarter: 2011Q1

REPORT INFORMATION
  Report Type: 
  Country: None (occurrence: None)
  Receive Date: 20110226
  Receipt Date: 20100908
  Transmission Date: 20110831
  Serious: No
  Sender: FDA-Public Use
  Company Number: US-ALLERGAN-1011611US

PATIENT
  Sex: Female

DRUGS (2)
  1. BOTOX COSMETIC [Suspect]
     Indication: SKIN WRINKLING
     Dosage: 40 UNITS, SINGLE
     Route: 030
     Dates: start: 20100819, end: 20100819
  2. BOTOX COSMETIC [Suspect]
     Dosage: 40 UNITS, SINGLE
     Route: 030
     Dates: start: 20090709, end: 20090709

REACTIONS (2)
  - EYE SWELLING [None]
  - LYMPHOEDEMA [None]
